FAERS Safety Report 17361903 (Version 6)
Quarter: 2021Q1

REPORT INFORMATION
  Report Type: Spontaneous
  Country: US (occurrence: US)
  Receive Date: 20200203
  Receipt Date: 20210304
  Transmission Date: 20210419
  Serious: Yes (Hospitalization)
  Sender: FDA-Public Use
  Company Number: US-PFIZER INC-2020046742

PATIENT
  Age: 72 Year
  Sex: Female
  Weight: 72.56 kg

DRUGS (1)
  1. LYRICA [Suspect]
     Active Substance: PREGABALIN
     Dosage: UNK

REACTIONS (6)
  - Thinking abnormal [Unknown]
  - Anxiety [Unknown]
  - Withdrawal syndrome [Unknown]
  - Rib fracture [Unknown]
  - Bronchitis [Unknown]
  - Pain [Unknown]
